FAERS Safety Report 8912931 (Version 1)
Quarter: 2012Q4

REPORT INFORMATION
  Report Type: 
  Country: FR (occurrence: FR)
  Receive Date: 20121116
  Receipt Date: 20121116
  Transmission Date: 20130627
  Serious: Yes (Hospitalization)
  Sender: FDA-Public Use
  Company Number: FR-GLAXOSMITHKLINE-B0842147A

PATIENT
  Age: 11 None
  Sex: Female

DRUGS (16)
  1. ZOPHREN [Suspect]
     Indication: PROPHYLAXIS OF NAUSEA AND VOMITING
     Route: 048
     Dates: start: 20120908
  2. CLOFARABINE [Suspect]
     Indication: CHRONIC LYMPHOCYTIC LEUKAEMIA
     Dosage: 46MG Per day
     Route: 042
     Dates: start: 20120907, end: 20120911
  3. ARACYTINE [Suspect]
     Indication: CHRONIC LYMPHOCYTIC LEUKAEMIA
     Dosage: 30MG Per day
     Route: 037
     Dates: start: 20120905
  4. ETOPOPHOS [Suspect]
     Indication: CHRONIC LYMPHOCYTIC LEUKAEMIA
     Dosage: 170MG Per day
     Route: 042
     Dates: start: 20120907, end: 20120909
  5. ENDOXAN [Suspect]
     Indication: CHRONIC LYMPHOCYTIC LEUKAEMIA
     Dosage: 460MG Per day
     Route: 042
     Dates: start: 20120907, end: 20120909
  6. HYDROCORTISONE [Suspect]
     Indication: CHRONIC LYMPHOCYTIC LEUKAEMIA
     Dosage: 15MG Per day
     Route: 037
     Dates: start: 20120905, end: 20120905
  7. PLITICAN [Suspect]
     Indication: PROPHYLAXIS OF NAUSEA AND VOMITING
     Route: 042
     Dates: start: 20120907, end: 20120911
  8. DEXAMETHASONE [Suspect]
     Indication: PROPHYLAXIS OF NAUSEA AND VOMITING
     Route: 042
     Dates: start: 20120907, end: 20120911
  9. PIPERACILLIN AND TAZOBACTAM [Suspect]
     Indication: FEBRILE BONE MARROW APLASIA
     Route: 042
     Dates: start: 20120919, end: 20120921
  10. GENTAMICINE [Suspect]
     Indication: FEBRILE BONE MARROW APLASIA
     Route: 042
     Dates: start: 20120919, end: 20120921
  11. PARACETAMOL [Suspect]
     Indication: PRODUCT USED FOR UNKNOWN INDICATION
     Route: 048
  12. VANCOMYCIN [Concomitant]
     Route: 065
     Dates: start: 20120920, end: 20120930
  13. TIENAM [Concomitant]
     Route: 065
     Dates: start: 201209
  14. ROVAMYCIN [Concomitant]
     Route: 065
     Dates: start: 201209
  15. LASILIX [Concomitant]
     Route: 065
  16. CANCIDAS [Concomitant]
     Route: 065
     Dates: start: 201209

REACTIONS (19)
  - Capillary leak syndrome [Recovered/Resolved]
  - Pericardial effusion [Recovered/Resolved]
  - Pleural effusion [Recovered/Resolved]
  - Face oedema [Recovered/Resolved]
  - Fluid retention [Recovered/Resolved]
  - Tachypnoea [Unknown]
  - Dyspnoea [Unknown]
  - Oedema peripheral [Recovered/Resolved]
  - Diarrhoea [Unknown]
  - Abdominal pain [Unknown]
  - Inflammation [Recovering/Resolving]
  - Protein total decreased [Unknown]
  - Blood albumin decreased [Unknown]
  - Febrile bone marrow aplasia [Unknown]
  - Pancytopenia [Unknown]
  - Ascites [Recovered/Resolved]
  - Ileitis [Unknown]
  - Pyrexia [Recovering/Resolving]
  - Pleurisy [Unknown]
